FAERS Safety Report 15075956 (Version 2)
Quarter: 2019Q1

REPORT INFORMATION
  Report Type: Spontaneous
  Country: US (occurrence: US)
  Receive Date: 20180627
  Receipt Date: 20190121
  Transmission Date: 20190417
  Serious: Yes (Other)
  Sender: FDA-Public Use
  Company Number: US-SA-2018SA166994

PATIENT
  Age: 47 Year
  Sex: Female
  Weight: 88.45 kg

DRUGS (8)
  1. 5 FLUOROURACIL [FLUOROURACIL] [Concomitant]
     Active Substance: FLUOROURACIL
  2. TAXOTERE [Suspect]
     Active Substance: DOCETAXEL
     Dosage: 194 MG, 150 MG
     Route: 042
     Dates: start: 20091011, end: 20091011
  3. NEOSAR [Concomitant]
     Active Substance: CYCLOPHOSPHAMIDE
  4. TAMOXIFEN [Concomitant]
     Active Substance: TAMOXIFEN
  5. TAXOTERE [Suspect]
     Active Substance: DOCETAXEL
     Indication: BREAST CANCER FEMALE
     Dosage: 194 MG, 150 MG
     Route: 042
     Dates: start: 20090821, end: 20090821
  6. EPIRUBICIN [Concomitant]
     Active Substance: EPIRUBICIN
  7. CYTOXAN [Concomitant]
     Active Substance: CYCLOPHOSPHAMIDE
  8. DEXAMETHASONE. [Concomitant]
     Active Substance: DEXAMETHASONE

REACTIONS (2)
  - Alopecia [Recovering/Resolving]
  - Psychological trauma [Unknown]

NARRATIVE: CASE EVENT DATE: 201504
